FAERS Safety Report 5964017-8 (Version None)
Quarter: 2008Q4

REPORT INFORMATION
  Report Type: 
  Country: None (occurrence: None)
  Receive Date: 20081124
  Receipt Date: 20081114
  Transmission Date: 20090506
  Serious: Yes (Life-Threatening)
  Sender: FDA-Public Use
  Company Number: US-ABBOTT-08P-163-0487545-00

PATIENT
  Sex: Female
  Weight: 69.462 kg

DRUGS (11)
  1. HUMIRA [Suspect]
     Indication: COLITIS ULCERATIVE
     Route: 058
     Dates: start: 20080110, end: 20081113
  2. DILTIAZEM HCL [Concomitant]
     Indication: HYPERTENSION
     Dates: start: 20040101
  3. DICLOFENAC DIETHYLAMINE [Concomitant]
     Indication: ARTHRITIS
     Dates: start: 20040101
  4. PARACETAMOL [Concomitant]
     Indication: ARTHRITIS
     Dates: start: 20040101
  5. MOMETASONE FUROATE [Concomitant]
     Indication: SEASONAL ALLERGY
     Dates: start: 20030101
  6. FLUTICASONE PROPIONATE [Concomitant]
     Indication: SEASONAL ALLERGY
     Dates: start: 20030101
  7. HYDROXYZINE [Concomitant]
     Indication: SEASONAL ALLERGY
     Dates: start: 20030101
  8. ESSENTIAL MINERAL [Concomitant]
     Indication: ROUTINE HEALTH MAINTENANCE
     Dates: start: 19960101
  9. ESSENTIAL VITAMIN [Concomitant]
     Indication: ROUTINE HEALTH MAINTENANCE
     Dates: start: 19960101
  10. GLUCOSAMINE W/METHYLSULFONYLMETHANE [Concomitant]
     Indication: ARTHRITIS
     Dates: start: 20040101
  11. CONJUGATED ESTROGENS [Concomitant]
     Indication: HORMONE REPLACEMENT THERAPY
     Dates: start: 20080123

REACTIONS (1)
  - B-CELL LYMPHOMA [None]
